FAERS Safety Report 9825948 (Version 2)
Quarter: 2014Q1

REPORT INFORMATION
  Report Type: Spontaneous
  Country: US (occurrence: US)
  Receive Date: 20140117
  Receipt Date: 20140117
  Transmission Date: 20141002
  Serious: Yes (Hospitalization, Other)
  Sender: FDA-Public Use
  Company Number: US-RB-061827-14

PATIENT
  Age: 51 Year
  Sex: Female

DRUGS (5)
  1. LANACANE ANTI ITCH CREAM EXTRA STRENGTH (BENZOCAINE) [Suspect]
     Indication: ORAL HERPES
     Dosage: LAST USED ON 30-DEC-2013
     Route: 061
     Dates: start: 20131225
  2. LANACANE ANTI ITCH CREAM EXTRA STRENGTH (BENZETHONIUM CHLORIDE) [Suspect]
  3. METOPROLOL [Concomitant]
     Indication: PRODUCT USED FOR UNKNOWN INDICATION
  4. GABAPENTIN [Concomitant]
     Indication: PRODUCT USED FOR UNKNOWN INDICATION
  5. LASEX [Concomitant]
     Indication: PRODUCT USED FOR UNKNOWN INDICATION

REACTIONS (8)
  - Cellulitis [Not Recovered/Not Resolved]
  - Bacterial infection [Not Recovered/Not Resolved]
  - Eyelid oedema [Not Recovered/Not Resolved]
  - Swelling face [Not Recovered/Not Resolved]
  - Erythema [Not Recovered/Not Resolved]
  - Feeling hot [Not Recovered/Not Resolved]
  - Rash [Not Recovered/Not Resolved]
  - Expired drug administered [Not Recovered/Not Resolved]
